FAERS Safety Report 4918458-8 (Version None)
Quarter: 2006Q1

REPORT INFORMATION
  Report Type: 
  Country: None (occurrence: None)
  Receive Date: 20060217
  Receipt Date: 20060217
  Transmission Date: 20060701
  Serious: Yes (Other)
  Sender: FDA-Public Use
  Company Number: None

PATIENT
  Age: 35 Year
  Sex: Female
  Weight: 62.6 kg

DRUGS (4)
  1. ISOVUE-300 [Suspect]
     Indication: COMPUTERISED TOMOGRAM
     Dosage: 130 ML IV X 1    2 ML/SEC
     Route: 042
  2. ISOVUE-300 [Suspect]
     Indication: COMPUTERISED TOMOGRAM ABDOMEN
     Dosage: 130 ML IV X 1    2 ML/SEC
     Route: 042
  3. ORAL CONTRAST [Suspect]
     Indication: COMPUTERISED TOMOGRAM
  4. HERBAL AND DIET MEDICATIONS [Concomitant]

REACTIONS (2)
  - DYSPHAGIA [None]
  - THROAT TIGHTNESS [None]
